FAERS Safety Report 10288840 (Version 1)
Quarter: 2014Q3

REPORT INFORMATION
  Report Type: Spontaneous
  Country: FI (occurrence: FI)
  Receive Date: 20140709
  Receipt Date: 20140709
  Transmission Date: 20150326
  Serious: Yes (Life-Threatening, Hospitalization, Disabling)
  Sender: FDA-Public Use
  Company Number: FI-B.I. PHARMACEUTICALS,INC./RIDGEFIELD-2014-BI-31202SF

PATIENT
  Age: 84 Year
  Sex: Female

DRUGS (3)
  1. BISOPROLOL [Concomitant]
     Active Substance: BISOPROLOL
     Indication: HYPERTENSION
     Dosage: 1.25 MG
     Route: 048
  2. PRADAXA [Suspect]
     Active Substance: DABIGATRAN ETEXILATE MESYLATE
     Indication: CEREBRAL DISORDER
     Dosage: 220 MG
     Route: 048
     Dates: start: 20140315, end: 20140509
  3. CARDACE [Concomitant]
     Active Substance: RAMIPRIL
     Indication: HYPERTENSION
     Dosage: 10 MG
     Route: 048
     Dates: end: 20140510

REACTIONS (20)
  - Anaemia [Unknown]
  - Haematochezia [Recovered/Resolved]
  - Faeces discoloured [Recovered/Resolved]
  - Fatigue [Unknown]
  - Appetite disorder [Unknown]
  - Activated partial thromboplastin time prolonged [Unknown]
  - Off label use [Unknown]
  - Thrombin time prolonged [Not Recovered/Not Resolved]
  - Electrocardiogram T wave abnormal [Unknown]
  - Blood creatinine increased [Recovered/Resolved with Sequelae]
  - Weight decreased [Unknown]
  - Peripheral swelling [Unknown]
  - Hyperkalaemia [Recovered/Resolved]
  - Acidosis [Recovered/Resolved]
  - Melaena [Recovered/Resolved]
  - Medication error [Unknown]
  - Renal failure acute [Recovered/Resolved with Sequelae]
  - Oedematous kidney [Unknown]
  - Asthenia [Unknown]
  - Nephritis [Recovered/Resolved with Sequelae]

NARRATIVE: CASE EVENT DATE: 20140315
